FAERS Safety Report 13114083 (Version 2)
Quarter: 2017Q2

REPORT INFORMATION
  Report Type: Spontaneous
  Country: US (occurrence: US)
  Receive Date: 20170113
  Receipt Date: 20170626
  Transmission Date: 20170830
  Serious: No
  Sender: FDA-Public Use
  Company Number: US-PFIZER INC-2016565955

PATIENT
  Age: 76 Year
  Sex: Male

DRUGS (4)
  1. SUTENT [Suspect]
     Active Substance: SUNITINIB MALATE
     Dosage: 50 MG, CYCLIC (DAILY/2 WKS. ON 1 WK. OFF)
     Route: 048
     Dates: start: 201611, end: 201703
  2. SUTENT [Suspect]
     Active Substance: SUNITINIB MALATE
     Indication: METASTATIC RENAL CELL CARCINOMA
     Dosage: 50 MG, CYCLIC, (2 WEEKS ON/1 WEEK OFF)
     Dates: start: 20161209
  3. TYLENOL [Concomitant]
     Active Substance: ACETAMINOPHEN
     Dosage: UNK, AS NEEDED
  4. TRAMADOL. [Concomitant]
     Active Substance: TRAMADOL
     Dosage: UNK

REACTIONS (9)
  - Constipation [Recovered/Resolved]
  - Oedema peripheral [Unknown]
  - Dysphonia [Unknown]
  - Pain in extremity [Unknown]
  - Dry skin [Unknown]
  - Decreased appetite [Unknown]
  - Skin exfoliation [Unknown]
  - Dysgeusia [Unknown]
  - Blister [Recovered/Resolved]
